FAERS Safety Report 5016517-5 (Version None)
Quarter: 2006Q2

REPORT INFORMATION
  Report Type: 
  Country: None (occurrence: None)
  Receive Date: 20060602
  Receipt Date: 20060525
  Transmission Date: 20061013
  Serious: Yes (Other)
  Sender: FDA-Public Use
  Company Number: GB-AVENTIS-200615657GDDC

PATIENT
  Age: 54 Year
  Sex: Male

DRUGS (15)
  1. ARAVA [Suspect]
     Indication: RHEUMATOID ARTHRITIS
     Route: 048
     Dates: start: 20060118
  2. MS CONTIN [Concomitant]
  3. PREDNISOLONE [Concomitant]
  4. LOPERAMIDE [Concomitant]
  5. CIPROFLOXACIN [Concomitant]
  6. ESOMEPRAZOLE [Concomitant]
  7. MANEVAC [Concomitant]
     Dosage: DOSE: 2 X 5
  8. GAVISCON [Concomitant]
     Dosage: FREQUENCY: AFTER MEALS
  9. TRAMADOL HCL [Concomitant]
  10. MELOXICAM [Concomitant]
  11. DIFFLAM [Concomitant]
  12. CALCICHEW [Concomitant]
     Dosage: DOSE: 1 TDS
  13. FOLIC ACID [Concomitant]
  14. ACETAMINOPHEN W/ CODEINE [Concomitant]
     Dosage: DOSE: 30 + 500
  15. TRIAMCINOLONE [Concomitant]
     Dosage: DOSE: TDS

REACTIONS (1)
  - POLYDIPSIA [None]
